FAERS Safety Report 11121961 (Version 1)
Quarter: 2015Q2

REPORT INFORMATION
  Report Type: Spontaneous
  Country: GB (occurrence: GB)
  Receive Date: 20150519
  Receipt Date: 20150519
  Transmission Date: 20150821
  Serious: Yes (Hospitalization)
  Sender: FDA-Public Use
  Company Number: GB-TEVA-563207ACC

PATIENT
  Age: 15 Year
  Sex: Female

DRUGS (4)
  1. HYDROCORTISONE ACETATE. [Concomitant]
     Active Substance: HYDROCORTISONE ACETATE
  2. THYROXINE [Concomitant]
     Active Substance: LEVOTHYROXINE
  3. GROWTH HORMONE [Concomitant]
     Active Substance: SOMATROPIN
  4. METFORMIN [Suspect]
     Active Substance: METFORMIN HYDROCHLORIDE
     Indication: BODY MASS INDEX INCREASED
     Dosage: 2 GRAM DAILY; WAS INCREASED TO 1G TWICE DAILY 3-4 DAYS PRIOR TO THE EVENT
     Route: 048
     Dates: start: 20150401

REACTIONS (1)
  - Hypothermia [Recovered/Resolved]

NARRATIVE: CASE EVENT DATE: 20150427
